FAERS Safety Report 6569439-2 (Version None)
Quarter: 2010Q1

REPORT INFORMATION
  Report Type: 
  Country: None (occurrence: None)
  Receive Date: 20100202
  Receipt Date: 20100202
  Transmission Date: 20100710
  Serious: No
  Sender: FDA-Public Use
  Company Number: None

PATIENT

DRUGS (1)
  1. BONIVA [Suspect]
     Indication: OSTEOPENIA
     Dosage: 150-MG TABLETS 1 PER MONTH
     Dates: start: 20100107, end: 20100124

REACTIONS (2)
  - ARTHRALGIA [None]
  - MYALGIA [None]
